FAERS Safety Report 6018235-3 (Version None)
Quarter: 2008Q4

REPORT INFORMATION
  Report Type: 
  Country: None (occurrence: None)
  Receive Date: 20081223
  Receipt Date: 20081218
  Transmission Date: 20090506
  Serious: Yes (Other)
  Sender: FDA-Public Use
  Company Number: PL-ELI_LILLY_AND_COMPANY-PL200812005024

PATIENT
  Sex: Male

DRUGS (3)
  1. GEMZAR [Suspect]
     Indication: PANCREATIC CARCINOMA
     Dosage: UNK UNK, WEEKLY (1/W)
     Route: 042
     Dates: start: 20081208
  2. TARCEVA [Concomitant]
     Indication: PANCREATIC CARCINOMA
     Dosage: 25 MG, 4/D
     Route: 048
     Dates: start: 20081208
  3. TARCEVA [Concomitant]
     Dosage: 50 MG, 2/D
     Route: 048

REACTIONS (4)
  - CHILLS [None]
  - PYREXIA [None]
  - RASH [None]
  - SYNCOPE [None]
